FAERS Safety Report 21326107 (Version 1)
Quarter: 2022Q3

REPORT INFORMATION
  Report Type: Spontaneous
  Country: US (occurrence: US)
  Receive Date: 20220913
  Receipt Date: 20220913
  Transmission Date: 20221026
  Serious: Yes (Hospitalization)
  Sender: FDA-Public Use
  Company Number: US-STRIDES ARCOLAB LIMITED-2021SP031510

PATIENT

DRUGS (1)
  1. TACROLIMUS [Suspect]
     Active Substance: TACROLIMUS
     Indication: Renal transplant
     Dosage: UNK (DRUG WAS WITHHELD FOR 36 HOURS)
     Route: 065

REACTIONS (3)
  - Acute kidney injury [Recovered/Resolved]
  - COVID-19 [Unknown]
  - Drug level above therapeutic [Unknown]
